FAERS Safety Report 5185601-8 (Version None)
Quarter: 2006Q4

REPORT INFORMATION
  Report Type: 
  Country: None (occurrence: None)
  Receive Date: 20061220
  Receipt Date: 20060814
  Transmission Date: 20070319
  Serious: No
  Sender: FDA-Public Use
  Company Number: US-GLAXOSMITHKLINE-A0616480A

PATIENT
  Age: 62 Year
  Sex: Female

DRUGS (1)
  1. NICODERM CQ [Suspect]

REACTIONS (4)
  - APPLICATION SITE ERYTHEMA [None]
  - HUNGER [None]
  - NICOTINE DEPENDENCE [None]
  - WEIGHT INCREASED [None]
